FAERS Safety Report 7206533-7 (Version None)
Quarter: 2011Q1

REPORT INFORMATION
  Report Type: 
  Country: None (occurrence: None)
  Receive Date: 20110103
  Receipt Date: 20101222
  Transmission Date: 20110831
  Serious: Yes (Other)
  Sender: FDA-Public Use
  Company Number: PHHY2009CA49065

PATIENT
  Sex: Female

DRUGS (1)
  1. SANDOSTATIN LAR [Suspect]
     Indication: NEUROENDOCRINE TUMOUR
     Dosage: 30 MG, EVERY 4 WEEKS
     Route: 030
     Dates: start: 20090315, end: 20101117

REACTIONS (14)
  - FLATULENCE [None]
  - DYSPNOEA [None]
  - ALOPECIA [None]
  - DIARRHOEA [None]
  - HEADACHE [None]
  - DIZZINESS [None]
  - HYPOTENSION [None]
  - ERYTHEMA [None]
  - ABDOMINAL DISCOMFORT [None]
  - ANXIETY [None]
  - ASTHENIA [None]
  - DISTURBANCE IN ATTENTION [None]
  - FLUSHING [None]
  - MUSCULAR WEAKNESS [None]
